FAERS Safety Report 9556256 (Version 2)
Quarter: 2013Q3

REPORT INFORMATION
  Report Type: Report from Study
  Country: DE (occurrence: DE)
  Receive Date: 20130926
  Receipt Date: 20130926
  Transmission Date: 20140515
  Serious: Yes (Death, Hospitalization, Other)
  Sender: FDA-Public Use
  Company Number: PHHO2005DE15708

PATIENT
  Sex: 0

DRUGS (6)
  1. AMN107 [Suspect]
     Indication: HYPEREOSINOPHILIC SYNDROME
     Dosage: 400 MG, BID
     Route: 048
     Dates: start: 20050921, end: 20051004
  2. ACYCLOVIR [Concomitant]
  3. PREDNISOLON [Concomitant]
  4. ISOPTIN [Concomitant]
  5. FUROSEMID [Concomitant]
  6. ALNA [Concomitant]

REACTIONS (18)
  - Neutropenia [Unknown]
  - Thrombocytopenia [Unknown]
  - Cardiac arrest [Fatal]
  - Sepsis [Fatal]
  - Asthenia [Fatal]
  - Pyrexia [Fatal]
  - Chills [Fatal]
  - Dyspnoea [Fatal]
  - Dehydration [Fatal]
  - C-reactive protein increased [Fatal]
  - Procalcitonin [Fatal]
  - Blood creatinine increased [Fatal]
  - Coagulation test abnormal [Fatal]
  - Endocarditis fibroplastica [Fatal]
  - Splenic infarction [Fatal]
  - Splenomegaly [Fatal]
  - Pleural effusion [Fatal]
  - Pericardial effusion [Fatal]
